FAERS Safety Report 5133863-5 (Version None)
Quarter: 2006Q4

REPORT INFORMATION
  Report Type: 
  Country: None (occurrence: None)
  Receive Date: 20061018
  Receipt Date: 20061010
  Transmission Date: 20070319
  Serious: Yes (Other)
  Sender: FDA-Public Use
  Company Number: 25871

PATIENT
  Sex: Female

DRUGS (1)
  1. NIASPAN [Suspect]
     Indication: HIGH DENSITY LIPOPROTEIN DECREASED
     Dosage: 3000 MG QHS PO
     Route: 048
     Dates: end: 20060920

REACTIONS (3)
  - BLOOD CHOLESTEROL INCREASED [None]
  - HEPATITIS [None]
  - LOW DENSITY LIPOPROTEIN INCREASED [None]
